FAERS Safety Report 9642548 (Version 1)
Quarter: 2013Q4

REPORT INFORMATION
  Report Type: Spontaneous
  Country: US (occurrence: US)
  Receive Date: 20131024
  Receipt Date: 20131024
  Transmission Date: 20140711
  Serious: Yes (Other)
  Sender: FDA-Public Use
  Company Number: US-BAYER-2013-128029

PATIENT
  Age: 44 Year
  Sex: Female
  Weight: 107.94 kg

DRUGS (5)
  1. YAZ [Suspect]
     Dosage: UNK
  2. YASMIN [Suspect]
     Dosage: UNK
  3. OCELLA [Suspect]
     Dosage: UNK
  4. ZARAH [Suspect]
     Dosage: UNK
     Dates: start: 20120418, end: 20120625
  5. SUMATRIPTAN [Concomitant]
     Indication: MIGRAINE
     Dosage: 50 MG, UNK
     Dates: start: 20120128, end: 20120625

REACTIONS (1)
  - Deep vein thrombosis [Recovering/Resolving]
